FAERS Safety Report 5322266-6 (Version None)
Quarter: 2007Q2

REPORT INFORMATION
  Report Type: 
  Country: None (occurrence: None)
  Receive Date: 20070511
  Receipt Date: 20070509
  Transmission Date: 20071010
  Serious: Yes (Other)
  Sender: FDA-Public Use
  Company Number: A0576480A

PATIENT
  Age: 47 Year
  Sex: Male

DRUGS (1)
  1. PAXIL [Suspect]
     Indication: DEPRESSION
     Dosage: 40MG PER DAY
     Route: 048
     Dates: start: 20030101, end: 20040101

REACTIONS (11)
  - AGITATION [None]
  - DELUSION [None]
  - DEPRESSION [None]
  - DRUG INEFFECTIVE [None]
  - HOMICIDE [None]
  - INSOMNIA [None]
  - MENTAL DISORDER [None]
  - OBSESSIVE THOUGHTS [None]
  - PERSONALITY CHANGE [None]
  - PSYCHOTIC DISORDER [None]
  - SUICIDAL IDEATION [None]
